FAERS Safety Report 9813602 (Version 7)
Quarter: 2016Q3

REPORT INFORMATION
  Report Type: Report from Study
  Country: JP (occurrence: JP)
  Receive Date: 20140113
  Receipt Date: 20160802
  Transmission Date: 20161109
  Serious: Yes (Hospitalization)
  Sender: FDA-Public Use
  Company Number: JP-ASTRAZENECA-2012SE92439

PATIENT
  Age: 75 Year
  Sex: Male

DRUGS (84)
  1. BASEN [Suspect]
     Active Substance: VOGLIBOSE
     Indication: DIABETES MELLITUS
     Route: 048
     Dates: start: 20101217, end: 20131220
  2. SAYMOTIN [Suspect]
     Active Substance: KALLIDINOGENASE
     Indication: HYPERTENSION
     Route: 065
  3. REBAMIPIDE [Suspect]
     Active Substance: REBAMIPIDE
     Route: 048
     Dates: start: 20140116, end: 20140129
  4. CERCINE [Concomitant]
     Active Substance: DIAZEPAM
     Route: 065
     Dates: start: 20150724, end: 20150724
  5. BFLUID [Concomitant]
     Active Substance: AMINO ACIDS\DEXTROSE\ELECTROLYTES NOS\VITAMINS
     Route: 065
     Dates: start: 20150726, end: 20150727
  6. SEPAMIT [Concomitant]
     Indication: HYPERTENSION
     Dates: start: 20131201, end: 20131203
  7. GLYCEOL [Concomitant]
     Active Substance: GLYCERIN
     Dates: start: 20131202, end: 20131202
  8. LAMISIL [Concomitant]
     Active Substance: TERBINAFINE HYDROCHLORIDE
     Route: 062
     Dates: start: 20140106, end: 201402
  9. SULBACILLIN [Concomitant]
     Active Substance: AMPICILLIN SODIUM\SULBACTAM SODIUM
     Dates: start: 20150724, end: 20150724
  10. SULBACILLIN [Concomitant]
     Active Substance: AMPICILLIN SODIUM\SULBACTAM SODIUM
     Dates: start: 20150727, end: 20150727
  11. SOLDEM 3A [Concomitant]
     Active Substance: CARBOHYDRATES\POTASSIUM CHLORIDE\SODIUM CHLORIDE\SODIUM LACTATE
     Dates: start: 20150728, end: 20150728
  12. LECICARBON [Concomitant]
     Active Substance: SODIUM BICARBONATE\SODIUM PHOSPHATE, MONOBASIC
     Dosage: 1.0IU UNKNOWN
     Route: 054
     Dates: start: 20131208, end: 20131217
  13. GLIMICRON [Suspect]
     Active Substance: GLICLAZIDE
     Indication: DIABETES MELLITUS
     Route: 048
     Dates: start: 20040206, end: 20131220
  14. BASEN [Suspect]
     Active Substance: VOGLIBOSE
     Indication: DIABETES MELLITUS
     Route: 048
     Dates: start: 20131205, end: 20131209
  15. METHYLDOPA HYDRATE [Suspect]
     Active Substance: METHYLDOPA
     Indication: HYPERTENSION
     Route: 065
  16. TRAZENTA [Suspect]
     Active Substance: LINAGLIPTIN
     Indication: DIABETES MELLITUS
     Route: 065
     Dates: start: 20131211, end: 20131226
  17. RADICUT [Concomitant]
     Active Substance: EDARAVONE
     Route: 041
     Dates: start: 20131201, end: 20131201
  18. CRAVIT [Concomitant]
     Active Substance: LEVOFLOXACIN
     Route: 047
     Dates: start: 20131208, end: 201402
  19. SULBACILLIN [Concomitant]
     Active Substance: AMPICILLIN SODIUM\SULBACTAM SODIUM
     Dates: start: 20140203, end: 20140203
  20. SOLYUGEN F [Concomitant]
     Dates: start: 20140203, end: 20140203
  21. SOLDEM 3A [Concomitant]
     Active Substance: CARBOHYDRATES\POTASSIUM CHLORIDE\SODIUM CHLORIDE\SODIUM LACTATE
     Dates: start: 20140202, end: 20140202
  22. AMLODIPINE [Concomitant]
     Active Substance: AMLODIPINE BESYLATE
  23. CRESTOR [Suspect]
     Active Substance: ROSUVASTATIN CALCIUM
     Indication: HYPERCHOLESTEROLAEMIA
     Route: 048
     Dates: start: 20120803
  24. NEXIUM [Suspect]
     Active Substance: ESOMEPRAZOLE MAGNESIUM
     Indication: DUODENAL ULCER
     Route: 048
     Dates: start: 20131227
  25. BAYASPIRIN [Suspect]
     Active Substance: ASPIRIN
     Route: 048
     Dates: start: 20131202
  26. PINDOLOL. [Suspect]
     Active Substance: PINDOLOL
     Indication: HYPERTENSION
     Route: 065
  27. REBAMIPIDE [Suspect]
     Active Substance: REBAMIPIDE
     Route: 048
     Dates: start: 20140130
  28. TRAZENTA [Suspect]
     Active Substance: LINAGLIPTIN
     Indication: DIABETES MELLITUS
     Route: 065
     Dates: start: 20131227
  29. AMLODIN [Concomitant]
     Active Substance: AMLODIPINE BESYLATE
     Indication: HYPERTENSION
     Dates: start: 2002
  30. PURSENNID [Concomitant]
     Active Substance: SENNOSIDES A AND B
     Route: 048
     Dates: start: 20131206, end: 20131210
  31. PURSENNID [Concomitant]
     Active Substance: SENNOSIDES A AND B
     Route: 048
     Dates: start: 20131220
  32. LAMISIL [Concomitant]
     Active Substance: TERBINAFINE HYDROCHLORIDE
     Route: 062
     Dates: start: 20140106, end: 201402
  33. LACTEC [Concomitant]
     Active Substance: CALCIUM CHLORIDE ANHYDROUS\POTASSIUM CHLORIDE\SODIUM CHLORIDE\SODIUM LACTATE
     Dates: start: 20140203, end: 20140203
  34. NOVOLIN R [Concomitant]
     Active Substance: INSULIN HUMAN
     Dates: start: 20131219, end: 20131225
  35. KENEI G ENEMA [Concomitant]
     Active Substance: GLYCERIN
     Route: 054
     Dates: start: 20131220, end: 20131220
  36. DEPAKENE [Concomitant]
     Active Substance: VALPROIC ACID
     Route: 048
     Dates: start: 20150724, end: 20150729
  37. REBAMIPIDE [Suspect]
     Active Substance: REBAMIPIDE
     Route: 048
     Dates: start: 20131227, end: 20140115
  38. MAGLAX [Suspect]
     Active Substance: MAGNESIUM OXIDE
     Route: 048
     Dates: start: 20131212, end: 20140129
  39. BRONUCK [Concomitant]
     Active Substance: BROMFENAC SODIUM
     Route: 047
     Dates: start: 20120214, end: 20131201
  40. LIVOSTIN [Concomitant]
     Active Substance: LEVOCABASTINE HYDROCHLORIDE
     Route: 047
     Dates: start: 20120214, end: 20131201
  41. ACTIT [Concomitant]
     Dates: start: 20131204, end: 20131204
  42. ACTIT [Concomitant]
     Dates: start: 20150725, end: 20150725
  43. PENTAGIN [Concomitant]
     Active Substance: PENTAZOCINE HYDROCHLORIDE
     Dates: start: 20140204, end: 20140204
  44. SOLDEM 3A [Concomitant]
     Active Substance: CARBOHYDRATES\POTASSIUM CHLORIDE\SODIUM CHLORIDE\SODIUM LACTATE
     Dates: start: 20140205, end: 20140205
  45. GLIMICRON [Suspect]
     Active Substance: GLICLAZIDE
     Indication: DIABETES MELLITUS
     Route: 048
     Dates: start: 20131205, end: 20131209
  46. NESINA [Suspect]
     Active Substance: ALOGLIPTIN BENZOATE
     Indication: DIABETES MELLITUS
     Route: 048
     Dates: start: 20130118, end: 20130321
  47. GASPORT [Concomitant]
     Active Substance: FAMOTIDINE
     Route: 048
     Dates: start: 201102
  48. KENACORT-A [Concomitant]
     Active Substance: TRIAMCINOLONE
     Route: 014
     Dates: start: 20130308, end: 20130308
  49. ACTIT [Concomitant]
     Dates: start: 20150724, end: 20150724
  50. SULBACILLIN [Concomitant]
     Active Substance: AMPICILLIN SODIUM\SULBACTAM SODIUM
     Dates: start: 20140202, end: 20140202
  51. CEFMETAZOLE NA [Concomitant]
     Active Substance: CEFMETAZOLE
     Dates: start: 20140203, end: 20140206
  52. SOLDEM 3A [Concomitant]
     Active Substance: CARBOHYDRATES\POTASSIUM CHLORIDE\SODIUM CHLORIDE\SODIUM LACTATE
     Dates: start: 20140204, end: 20140204
  53. BOSMIN [Concomitant]
     Active Substance: EPINEPHRINE
     Dates: start: 20150724, end: 20150724
  54. DEPAKENE [Concomitant]
     Active Substance: VALPROIC ACID
     Route: 048
     Dates: start: 20150730
  55. ALOSITOL [Suspect]
     Active Substance: ALLOPURINOL
     Route: 048
     Dates: start: 20101217, end: 20131220
  56. HUMULIN R [Concomitant]
     Active Substance: INSULIN HUMAN
     Dates: start: 20131203, end: 20140224
  57. HUMULIN R [Concomitant]
     Active Substance: INSULIN HUMAN
     Dates: start: 20140205, end: 20140209
  58. GLYCEOL [Concomitant]
     Active Substance: GLYCERIN
     Dates: start: 20131203, end: 20131203
  59. ACTIT [Concomitant]
     Dates: start: 20131202, end: 20131204
  60. ACTIT [Concomitant]
     Dates: start: 20150726, end: 20150727
  61. LOXONIN [Concomitant]
     Active Substance: LOXOPROFEN SODIUM
     Dosage: 60.0MG AS REQUIRED
     Route: 048
     Dates: start: 20131207, end: 20131217
  62. VASOLAN [Concomitant]
     Active Substance: VERAPAMIL HYDROCHLORIDE
     Dates: start: 20131213, end: 20131213
  63. NEXIUM [Suspect]
     Active Substance: ESOMEPRAZOLE MAGNESIUM
     Indication: DUODENAL ULCER
     Route: 048
     Dates: start: 20131203, end: 20131214
  64. BAYASPIRIN [Suspect]
     Active Substance: ASPIRIN
     Route: 048
     Dates: start: 20131201, end: 20131201
  65. PHENOBAL [Concomitant]
     Active Substance: PHENOBARBITAL
     Route: 065
     Dates: start: 20150724, end: 20150725
  66. GLYCEOL [Concomitant]
     Active Substance: GLYCERIN
     Dates: start: 20131201, end: 20131201
  67. RADICUT [Concomitant]
     Active Substance: EDARAVONE
     Route: 041
     Dates: start: 20131202, end: 20131204
  68. ISOTONIC SODIUM CHLORIDE SOLUTION [Concomitant]
     Active Substance: SODIUM CHLORIDE
     Dates: start: 20131201, end: 20131201
  69. SOLYUGEN F [Concomitant]
     Dates: start: 20140203, end: 20140203
  70. SOLYUGEN F [Concomitant]
     Dates: start: 20140203, end: 20140203
  71. SOLDEM 3A [Concomitant]
     Active Substance: CARBOHYDRATES\POTASSIUM CHLORIDE\SODIUM CHLORIDE\SODIUM LACTATE
     Dates: start: 20140303, end: 20140303
  72. LECICARBON [Concomitant]
     Active Substance: SODIUM BICARBONATE\SODIUM PHOSPHATE, MONOBASIC
     Dosage: 1.0IU UNKNOWN
     Route: 054
     Dates: start: 20131220, end: 20131220
  73. KENEI G ENEMA [Concomitant]
     Active Substance: GLYCERIN
     Route: 054
     Dates: start: 20131211, end: 20131211
  74. SOLYUGEN G [Concomitant]
     Dates: start: 20140204, end: 20140206
  75. ALLOZYM [Suspect]
     Active Substance: ALLOPURINOL
     Route: 048
     Dates: start: 20131221, end: 20140313
  76. TANATRIL [Suspect]
     Active Substance: IMIDAPRIL
     Indication: HYPERTENSION
     Route: 048
     Dates: start: 20131207
  77. MAGLAX [Suspect]
     Active Substance: MAGNESIUM OXIDE
     Route: 048
     Dates: start: 20140130, end: 20140202
  78. AMARYL [Suspect]
     Active Substance: GLIMEPIRIDE
     Indication: DIABETES MELLITUS
     Route: 065
     Dates: start: 20140109
  79. ALLOPURINOL. [Suspect]
     Active Substance: ALLOPURINOL
     Indication: HYPERTENSION
     Route: 048
     Dates: start: 20140314
  80. SERENACE [Concomitant]
     Active Substance: HALOPERIDOL
     Route: 065
     Dates: start: 20150724, end: 20150724
  81. LANTUS [Concomitant]
     Active Substance: INSULIN GLARGINE
     Indication: DIABETES MELLITUS
     Dates: start: 20131209, end: 20140108
  82. ENSURE [Concomitant]
     Active Substance: AMINO ACIDS\DEXTROSE\ELECTROLYTES NOS\SOYBEAN OIL\VITAMINS
     Dates: start: 20131227, end: 20131227
  83. ALEVIATIN [Concomitant]
     Active Substance: PHENYTOIN SODIUM
     Dates: start: 20150724, end: 20150725
  84. PETROLATUM SALICYLATE [Concomitant]
     Route: 062
     Dates: start: 20140106, end: 201402

REACTIONS (3)
  - Appendicitis [Recovered/Resolved]
  - Seizure [Recovering/Resolving]
  - Cerebral infarction [Recovered/Resolved with Sequelae]

NARRATIVE: CASE EVENT DATE: 20131201
